FAERS Safety Report 13198540 (Version 1)
Quarter: 2017Q1

REPORT INFORMATION
  Report Type: Report from Study
  Country: US (occurrence: US)
  Receive Date: 20170208
  Receipt Date: 20170208
  Transmission Date: 20170428
  Serious: Yes (Other)
  Sender: FDA-Public Use
  Company Number: US-AMGEN-USASL2017017457

PATIENT
  Age: 66 Year
  Sex: Male

DRUGS (1)
  1. REPATHA [Suspect]
     Active Substance: EVOLOCUMAB
     Indication: TYPE V HYPERLIPIDAEMIA
     Dosage: UNK
     Route: 065

REACTIONS (12)
  - Abdominal distension [Recovering/Resolving]
  - Pain in extremity [Recovering/Resolving]
  - Breast mass [Recovered/Resolved]
  - Headache [Recovering/Resolving]
  - Neck pain [Recovering/Resolving]
  - Abdominal pain upper [Recovering/Resolving]
  - Diverticulitis [Recovering/Resolving]
  - Burning sensation [Recovering/Resolving]
  - Dehydration [Recovering/Resolving]
  - Musculoskeletal pain [Recovering/Resolving]
  - Insomnia [Recovering/Resolving]
  - Breast swelling [Recovering/Resolving]
